FAERS Safety Report 5928758-0 (Version None)
Quarter: 2008Q4

REPORT INFORMATION
  Report Type: 
  Country: None (occurrence: None)
  Receive Date: 20081024
  Receipt Date: 20081016
  Transmission Date: 20090506
  Serious: Yes (Other)
  Sender: FDA-Public Use
  Company Number: TR-RANBAXY-2008RR-18715

PATIENT
  Age: 6 Year
  Sex: Male

DRUGS (1)
  1. CETIRIZINE HCL [Suspect]
     Indication: RHINITIS ALLERGIC
     Dosage: 5 MG, QD

REACTIONS (1)
  - DYSTONIA [None]
